FAERS Safety Report 6759639-0 (Version None)
Quarter: 2010Q2

REPORT INFORMATION
  Report Type: 
  Country: None (occurrence: None)
  Receive Date: 20100608
  Receipt Date: 20100528
  Transmission Date: 20101027
  Serious: No
  Sender: FDA-Public Use
  Company Number: US-BIOGENIDEC-2010BI015305

PATIENT
  Age: 30 Year
  Sex: Female

DRUGS (4)
  1. TYSABRI [Suspect]
     Indication: MULTIPLE SCLEROSIS
     Route: 042
     Dates: start: 20100104
  2. METHOTREXATE [Concomitant]
  3. METHOTREXATE [Concomitant]
  4. METHOTREXATE [Concomitant]
     Dates: start: 20100101, end: 20100401

REACTIONS (4)
  - MULTIPLE SCLEROSIS RELAPSE [None]
  - NEURALGIA [None]
  - PAIN [None]
  - RASH [None]
